FAERS Safety Report 6093369-6 (Version None)
Quarter: 2009Q1

REPORT INFORMATION
  Report Type: 
  Country: None (occurrence: None)
  Receive Date: 20090223
  Receipt Date: 20090223
  Transmission Date: 20090719
  Serious: Yes (Hospitalization)
  Sender: FDA-Public Use
  Company Number: None

PATIENT
  Age: 38 Year
  Sex: Male
  Weight: 81.6475 kg

DRUGS (1)
  1. WELLBUTRIN [Suspect]
     Indication: PANIC ATTACK
     Dosage: 150MG ONE PER DAY APPROX YEAR AND A HALF
     Dates: start: 20070701, end: 20090218

REACTIONS (8)
  - ABNORMAL BEHAVIOUR [None]
  - ALCOHOL USE [None]
  - AMNESIA [None]
  - ANGER [None]
  - MOOD SWINGS [None]
  - PARTNER STRESS [None]
  - PERSONALITY CHANGE [None]
  - SUICIDAL IDEATION [None]
